FAERS Safety Report 5702479-1 (Version None)
Quarter: 2008Q2

REPORT INFORMATION
  Report Type: 
  Country: None (occurrence: None)
  Receive Date: 20080408
  Receipt Date: 20080324
  Transmission Date: 20081010
  Serious: Yes (Hospitalization)
  Sender: FDA-Public Use
  Company Number: 230306J08CAN

PATIENT
  Sex: Female

DRUGS (11)
  1. REBIF [Suspect]
     Indication: MULTIPLE SCLEROSIS
     Dates: start: 20070518, end: 20070613
  2. REBIF [Suspect]
     Indication: RELAPSING-REMITTING MULTIPLE SCLEROSIS
     Dates: start: 20070518, end: 20070613
  3. REBIF [Suspect]
     Indication: MULTIPLE SCLEROSIS
     Dates: start: 20070615
  4. REBIF [Suspect]
     Indication: RELAPSING-REMITTING MULTIPLE SCLEROSIS
     Dates: start: 20070615
  5. CARBAMAZEPINE [Concomitant]
  6. NORTRIPTYLINE /00006501/ [Concomitant]
  7. TOLTERODINE TARTRATE [Concomitant]
  8. HYDROCHLOROTHIAZIDE [Concomitant]
  9. VENLAFAXINE HCL [Concomitant]
  10. OXYCODONE HYDROCHLORIDE [Concomitant]
  11. TYLOX [Concomitant]

REACTIONS (8)
  - AMNESIA [None]
  - CONVULSION [None]
  - CYSTITIS [None]
  - HYPERHIDROSIS [None]
  - LOSS OF CONSCIOUSNESS [None]
  - PNEUMONIA [None]
  - SINUSITIS [None]
  - SUDDEN ONSET OF SLEEP [None]
